FAERS Safety Report 9209343 (Version 1)
Quarter: 2013Q1

REPORT INFORMATION
  Report Type: Spontaneous
  Country: US (occurrence: None)
  Receive Date: 20120817
  Receipt Date: 20120817
  Transmission Date: 20140127
  Serious: Yes (Life-Threatening, Hospitalization, Disabling)
  Sender: FDA-Public Use
  Company Number: 135788

PATIENT
  Age: 33 Year
  Sex: Male
  Weight: 42.18 kg

DRUGS (2)
  1. CYTARABINE [Suspect]
     Indication: ACUTE MYELOID LEUKAEMIA
     Dosage: IV (CONTINOUS DRIP)
     Dates: start: 20120414, end: 20120420
  2. DAUNORUBICIN HCL [Suspect]
     Dosage: UID/QD
     Route: 042
     Dates: start: 20120414, end: 20120416

REACTIONS (3)
  - Acute respiratory distress syndrome [None]
  - Bacteraemia [None]
  - Renal disorder [None]
